FAERS Safety Report 6963645-0 (Version None)
Quarter: 2010Q3

REPORT INFORMATION
  Report Type: 
  Country: None (occurrence: None)
  Receive Date: 20100902
  Receipt Date: 20100902
  Transmission Date: 20110219
  Serious: Yes (Death)
  Sender: FDA-Public Use
  Company Number: US-ROXANE LABORATORIES, INC.-2010-RO-01179RO

PATIENT
  Sex: Female

DRUGS (4)
  1. MORPHINE [Suspect]
     Indication: HOSPICE CARE
     Dates: start: 20100821
  2. LORAZEPAM [Concomitant]
  3. FENTANYL CITRATE [Concomitant]
  4. ULTRACET [Concomitant]

REACTIONS (2)
  - DEATH [None]
  - DRUG EFFECT DECREASED [None]
